FAERS Safety Report 14490738 (Version 1)
Quarter: 2018Q1

REPORT INFORMATION
  Report Type: Spontaneous
  Country: FR (occurrence: FR)
  Receive Date: 20180206
  Receipt Date: 20180206
  Transmission Date: 20180509
  Serious: Yes (Other)
  Sender: FDA-Public Use
  Company Number: FR-MERCK KGAA-2041449

PATIENT
  Age: 68 Year
  Sex: Male

DRUGS (4)
  1. LEVOTHYROX NF [Suspect]
     Active Substance: LEVOTHYROXINE SODIUM
     Dates: start: 201709
  2. L-THYROXIN [Suspect]
     Active Substance: LEVOTHYROXINE SODIUM
     Dates: start: 198707, end: 1996
  3. LEVOTHYROX 100 [Suspect]
     Active Substance: LEVOTHYROXINE SODIUM
     Dates: end: 1996
  4. NOVOTHYROX [Suspect]
     Active Substance: LEVOTHYROXINE SODIUM
     Indication: POST PROCEDURAL HYPOTHYROIDISM
     Dates: end: 1996

REACTIONS (8)
  - Eye disorder [None]
  - Headache [Not Recovered/Not Resolved]
  - Post procedural complication [Recovering/Resolving]
  - Balance disorder [Not Recovered/Not Resolved]
  - Eye pain [Not Recovered/Not Resolved]
  - Cardiac disorder [None]
  - Eye swelling [Recovered/Resolved]
  - Lipoma [None]

NARRATIVE: CASE EVENT DATE: 1987
